FAERS Safety Report 8791325 (Version 1)
Quarter: 2012Q4

REPORT INFORMATION
  Report Type: Spontaneous
  Country: KR (occurrence: None)
  Receive Date: 20120912
  Receipt Date: 20120912
  Transmission Date: 20130627
  Serious: Yes (Hospitalization)
  Sender: FDA-Public Use
  Company Number: KR-JNJFOC-20120900445

PATIENT
  Age: 50 Year
  Sex: Female
  Weight: 47 kg

DRUGS (13)
  1. DECITABINE [Suspect]
     Route: 042
     Dates: start: 20111017, end: 20111021
  2. DECITABINE [Suspect]
     Route: 042
     Dates: start: 20111115, end: 20111118
  3. DECITABINE [Suspect]
     Route: 042
     Dates: start: 20111121, end: 20111121
  4. DECITABINE [Suspect]
     Route: 042
     Dates: start: 20111226, end: 20111230
  5. DECITABINE [Suspect]
     Route: 042
     Dates: start: 20120305, end: 20120309
  6. DECITABINE [Suspect]
     Route: 042
     Dates: start: 20120507, end: 20120511
  7. FLUCONAZOLE [Concomitant]
  8. ACYCLOVIR [Concomitant]
  9. SEPTRIN FORTE [Concomitant]
  10. CRAVIT [Concomitant]
  11. ACYCLOVIR [Concomitant]
  12. MOXICLE (AMOXI-CLAVULANICO) [Concomitant]
  13. CEFTRIAXONE (CEFTRIAXONE) UNSPECIFIED [Concomitant]

REACTIONS (7)
  - Febrile neutropenia [None]
  - Enteritis [None]
  - Gastric ulcer [None]
  - Haemorrhoids [None]
  - Mouth ulceration [None]
  - Tonsillitis [None]
  - Abscess [None]
